FAERS Safety Report 24906597 (Version 3)
Quarter: 2025Q1

REPORT INFORMATION
  Report Type: Report from Study
  Country: JP (occurrence: JP)
  Receive Date: 20250130
  Receipt Date: 20250313
  Transmission Date: 20250409
  Serious: Yes (Death, Other)
  Sender: OTSUKA
  Company Number: JP-OTSUKA-2025_002070

PATIENT
  Age: 85 Year
  Sex: Male

DRUGS (7)
  1. TOLVAPTAN [Suspect]
     Active Substance: TOLVAPTAN
     Indication: Cardiac failure
     Dosage: 8 MG/DAY, ONCE DAILY
     Route: 041
     Dates: start: 20240609, end: 20240611
  2. TOLVAPTAN [Suspect]
     Active Substance: TOLVAPTAN
     Indication: Fluid retention
  3. SAMSCA [Suspect]
     Active Substance: TOLVAPTAN
     Indication: Oedema due to cardiac disease
     Route: 048
     Dates: start: 20240607, end: 20240608
  4. FUROSEMIDE [Concomitant]
     Active Substance: FUROSEMIDE
     Indication: Product used for unknown indication
     Route: 050
     Dates: start: 20240605, end: 20240611
  5. SPIRONOLACTONE [Concomitant]
     Active Substance: SPIRONOLACTONE
     Indication: Product used for unknown indication
     Route: 048
     Dates: start: 20240607, end: 20240608
  6. ACETAMINOPHEN [Concomitant]
     Active Substance: ACETAMINOPHEN
     Indication: Product used for unknown indication
     Route: 048
     Dates: start: 20240526, end: 20240608
  7. ENARODUSTAT [Concomitant]
     Active Substance: ENARODUSTAT
     Indication: Product used for unknown indication
     Route: 048
     Dates: start: 20240607, end: 20240608

REACTIONS (3)
  - Respiratory arrest [Fatal]
  - Blood sodium increased [Unknown]
  - Drug monitoring procedure incorrectly performed [Unknown]

NARRATIVE: CASE EVENT DATE: 20240609
